FAERS Safety Report 19645305 (Version 1)
Quarter: 2021Q3

REPORT INFORMATION
  Report Type: Spontaneous
  Country: JP (occurrence: JP)
  Receive Date: 20210802
  Receipt Date: 20210802
  Transmission Date: 20211014
  Serious: No
  Sender: FDA-Public Use
  Company Number: JP-LUPIN PHARMACEUTICALS INC.-2021-13243

PATIENT
  Age: 87 Year
  Sex: Female

DRUGS (1)
  1. MINOCYCLINE [Suspect]
     Active Substance: MINOCYCLINE HYDROCHLORIDE
     Indication: PIGMENTATION DISORDER
     Dosage: 100 MILLIGRAM, BID (RECEIVING FOR 4 MONTHS)
     Route: 048

REACTIONS (1)
  - Skin hyperpigmentation [Unknown]
